FAERS Safety Report 16027469 (Version 1)
Quarter: 2019Q1

REPORT INFORMATION
  Report Type: Spontaneous
  Country: US (occurrence: US)
  Receive Date: 20190304
  Receipt Date: 20190304
  Transmission Date: 20190418
  Serious: No
  Sender: FDA-Public Use
  Company Number: US-GLAXOSMITHKLINE-US2019GSK034844

PATIENT
  Age: 54 Year
  Sex: Female
  Weight: 53.98 kg

DRUGS (5)
  1. XELJANZ [Suspect]
     Active Substance: TOFACITINIB CITRATE
     Indication: RHEUMATOID ARTHRITIS
     Dosage: 5 MG, BID
     Route: 048
  2. GABAPENTIN CAPSULE [Concomitant]
     Active Substance: GABAPENTIN
     Indication: NEUROPATHY PERIPHERAL
     Dosage: 300 MG, TID
     Route: 048
     Dates: start: 2008
  3. LISINOPRIL HCTZ TABLET [Concomitant]
     Indication: HYPERTENSION
     Dosage: 10-12.5 MG TABLET 2 TABLET ONCE A DAY BY MOUTH
     Route: 048
     Dates: start: 2015
  4. ADVAIR DISKUS [Suspect]
     Active Substance: FLUTICASONE PROPIONATE\SALMETEROL XINAFOATE
     Indication: CHRONIC OBSTRUCTIVE PULMONARY DISEASE
     Dosage: 1 PUFF(S), BID
     Route: 055
     Dates: start: 2014
  5. LEVOTHYROXINE SODIUM TABLET [Concomitant]
     Active Substance: LEVOTHYROXINE SODIUM
     Indication: THYROID DISORDER
     Dosage: 75 ?G, QD
     Route: 048
     Dates: start: 2000

REACTIONS (4)
  - Feeling hot [Unknown]
  - Dyspnoea [Unknown]
  - Hypertension [Unknown]
  - Inflammation [Unknown]

NARRATIVE: CASE EVENT DATE: 20180314
